FAERS Safety Report 23916741 (Version 3)
Quarter: 2025Q3

REPORT INFORMATION
  Report Type: Report from Study
  Country: AR (occurrence: AR)
  Receive Date: 20240529
  Receipt Date: 20250829
  Transmission Date: 20251021
  Serious: Yes (Death, Hospitalization, Other)
  Sender: KYOWA
  Company Number: AR-KYOWAKIRIN-2024KK012821

PATIENT

DRUGS (2)
  1. BUROSUMAB [Suspect]
     Active Substance: BUROSUMAB
     Indication: Hypophosphataemic osteomalacia
     Dosage: 20 MILLIGRAM, MONTHLY
     Route: 058
     Dates: start: 20200414
  2. BUROSUMAB [Suspect]
     Active Substance: BUROSUMAB
     Dosage: 40 MILLIGRAM, 4W (0.4MG/KG)
     Route: 058
     Dates: start: 202402

REACTIONS (10)
  - Postoperative wound infection [Fatal]
  - Cardiac arrest [Fatal]
  - Status epilepticus [Fatal]
  - Loss of consciousness [Not Recovered/Not Resolved]
  - Seizure [Not Recovered/Not Resolved]
  - Device related infection [Not Recovered/Not Resolved]
  - Agitation [Not Recovered/Not Resolved]
  - Sepsis [Unknown]
  - Prescribed underdose [Recovered/Resolved]
  - Off label use [Recovered/Resolved]

NARRATIVE: CASE EVENT DATE: 20200414
